FAERS Safety Report 7170519-1 (Version None)
Quarter: 2010Q4

REPORT INFORMATION
  Report Type: 
  Country: None (occurrence: None)
  Receive Date: 20101217
  Receipt Date: 20101214
  Transmission Date: 20110411
  Serious: Yes (Death, Hospitalization)
  Sender: FDA-Public Use
  Company Number: PHBS2009US01051

PATIENT
  Sex: Male

DRUGS (6)
  1. EXJADE [Suspect]
     Dosage: 2000 MG, QD
     Route: 048
     Dates: start: 20091101
  2. EXJADE [Suspect]
     Dosage: 500 MG, BID
  3. VIDAZA [Concomitant]
     Indication: MYELODYSPLASTIC SYNDROME
     Route: 042
  4. SIMVASTATIN [Concomitant]
     Indication: HYPERLIPIDAEMIA
     Route: 048
  5. PREDNISONE [Concomitant]
     Indication: MYELODYSPLASTIC SYNDROME
  6. TOPROL-XL [Concomitant]
     Indication: HYPERTENSION

REACTIONS (7)
  - DEATH [None]
  - DIARRHOEA [None]
  - FAECES DISCOLOURED [None]
  - OVERDOSE [None]
  - OXYGEN SATURATION DECREASED [None]
  - RASH [None]
  - RED BLOOD CELL COUNT DECREASED [None]
